FAERS Safety Report 13647307 (Version 2)
Quarter: 2017Q3

REPORT INFORMATION
  Report Type: Spontaneous
  Country: JP (occurrence: JP)
  Receive Date: 20170613
  Receipt Date: 20170814
  Transmission Date: 20171127
  Serious: Yes (Other)
  Sender: FDA-Public Use
  Company Number: JP-009507513-1706JPN000631J

PATIENT
  Sex: Male

DRUGS (1)
  1. KEYTRUDA [Suspect]
     Active Substance: PEMBROLIZUMAB
     Indication: SQUAMOUS CELL CARCINOMA OF LUNG
     Dosage: 200 MG, Q3W
     Route: 041
     Dates: start: 20170525, end: 20170525

REACTIONS (4)
  - Hyperthyroidism [Unknown]
  - Pyrexia [Not Recovered/Not Resolved]
  - Malignant neoplasm progression [Unknown]
  - Paralysis [Unknown]

NARRATIVE: CASE EVENT DATE: 2017
